FAERS Safety Report 18263536 (Version 10)
Quarter: 2022Q1

REPORT INFORMATION
  Report Type: Report from Study
  Country: CA (occurrence: CA)
  Receive Date: 20200914
  Receipt Date: 20220317
  Transmission Date: 20220423
  Serious: Yes (Life-Threatening, Hospitalization, Other)
  Sender: FDA-Public Use
  Company Number: NVSC2020CA218491

PATIENT
  Age: 46 Year
  Sex: Female

DRUGS (5)
  1. MAYZENT [Suspect]
     Active Substance: SIPONIMOD
     Indication: Secondary progressive multiple sclerosis
     Dosage: UNK
     Route: 048
     Dates: start: 20200803
  2. MAYZENT [Suspect]
     Active Substance: SIPONIMOD
     Dosage: 1 MG, Q2W
     Route: 065
     Dates: start: 20200814
  3. MAYZENT [Suspect]
     Active Substance: SIPONIMOD
     Dosage: 2 MG
     Route: 065
     Dates: start: 20200821
  4. MAYZENT [Suspect]
     Active Substance: SIPONIMOD
     Dosage: 1 MG
     Route: 065
  5. BOTOX [Concomitant]
     Active Substance: ONABOTULINUMTOXINA
     Indication: Product used for unknown indication
     Dosage: UNK
     Route: 065

REACTIONS (25)
  - Lymphocyte count decreased [Unknown]
  - Chills [Unknown]
  - Malaise [Unknown]
  - Loss of consciousness [Recovering/Resolving]
  - Multiple sclerosis [Unknown]
  - Urinary tract infection [Unknown]
  - Hypoaesthesia oral [Unknown]
  - Chest discomfort [Unknown]
  - Hypotension [Recovering/Resolving]
  - Hyperhidrosis [Unknown]
  - Vomiting [Unknown]
  - Musculoskeletal stiffness [Unknown]
  - Decreased appetite [Unknown]
  - Fluid retention [Unknown]
  - Weight increased [Unknown]
  - Gait disturbance [Unknown]
  - Pain [Unknown]
  - Visual impairment [Unknown]
  - Vision blurred [Unknown]
  - Dizziness [Recovering/Resolving]
  - Peripheral swelling [Unknown]
  - Fatigue [Not Recovered/Not Resolved]
  - Asthenia [Unknown]
  - Headache [Unknown]
  - Nausea [Unknown]

NARRATIVE: CASE EVENT DATE: 20200803
